FAERS Safety Report 12311214 (Version 1)
Quarter: 2016Q2

REPORT INFORMATION
  Report Type: Report from Study
  Country: CO (occurrence: CO)
  Receive Date: 20160427
  Receipt Date: 20160427
  Transmission Date: 20160815
  Serious: Yes (Hospitalization, Other)
  Sender: FDA-Public Use
  Company Number: CO-JNJFOC-20160424201

PATIENT
  Sex: Female

DRUGS (1)
  1. XARELTO [Suspect]
     Active Substance: RIVAROXABAN
     Indication: PRODUCT USED FOR UNKNOWN INDICATION
     Route: 048
     Dates: start: 20130626

REACTIONS (3)
  - Dizziness [Recovered/Resolved]
  - Constipation [Recovering/Resolving]
  - Deafness unilateral [Recovering/Resolving]

NARRATIVE: CASE EVENT DATE: 20160329
